FAERS Safety Report 15692920 (Version 1)
Quarter: 2018Q4

REPORT INFORMATION
  Report Type: Spontaneous
  Country: FR (occurrence: FR)
  Receive Date: 20181206
  Receipt Date: 20181206
  Transmission Date: 20190205
  Serious: Yes (Hospitalization)
  Sender: FDA-Public Use
  Company Number: FR-TEVA-2018-FR-982507

PATIENT
  Age: 76 Year
  Sex: Male
  Weight: 73 kg

DRUGS (12)
  1. RAMIPRIL. [Suspect]
     Active Substance: RAMIPRIL
     Indication: MYOCARDIAL ISCHAEMIA
     Dosage: 2.5 MILLIGRAM DAILY;
     Route: 048
     Dates: end: 20180115
  2. PANTOPRAZOLE [Concomitant]
     Active Substance: PANTOPRAZOLE
  3. FUROSEMIDE. [Suspect]
     Active Substance: FUROSEMIDE
     Indication: MYOCARDIAL ISCHAEMIA
     Dosage: 80 MILLIGRAM DAILY;
     Route: 048
     Dates: end: 20180116
  4. KARDEGIC [Concomitant]
     Active Substance: ASPIRIN DL-LYSINE
  5. NEO-MERCAZOLE [Concomitant]
     Active Substance: CARBIMAZOLE
  6. TAHOR [Concomitant]
     Active Substance: ATORVASTATIN CALCIUM
  7. QUESTRAN [Concomitant]
     Active Substance: CHOLESTYRAMINE
  8. BRILIQUE [Concomitant]
     Active Substance: TICAGRELOR
  9. DIFFU K, G?LULE [Suspect]
     Active Substance: POTASSIUM CHLORIDE
     Indication: HYPOKALAEMIA
     Dosage: 4 DOSAGE FORMS DAILY;
     Route: 048
     Dates: end: 20180115
  10. CORGARD [Concomitant]
     Active Substance: NADOLOL
  11. IMOVANE [Concomitant]
     Active Substance: ZOPICLONE
  12. PREDNISONE. [Concomitant]
     Active Substance: PREDNISONE

REACTIONS (2)
  - Acute kidney injury [Recovered/Resolved]
  - Hyperkalaemia [Recovered/Resolved]

NARRATIVE: CASE EVENT DATE: 20180115
